FAERS Safety Report 6032676-X (Version None)
Quarter: 2009Q1

REPORT INFORMATION
  Report Type: 
  Country: None (occurrence: None)
  Receive Date: 20090107
  Receipt Date: 20090107
  Transmission Date: 20090719
  Serious: No
  Sender: FDA-Public Use
  Company Number: None

PATIENT
  Sex: Female
  Weight: 50.91 kg

DRUGS (8)
  1. ARICEPT [Suspect]
     Dosage: 5MG TABLET 5 MG QD ORAL
     Route: 048
     Dates: start: 20081216, end: 20090106
  2. ASPIRIN [Concomitant]
  3. CITALOPRAM HYDROBROMIDE [Concomitant]
  4. CLONAZEPAM [Concomitant]
  5. FOSAMAX [Concomitant]
  6. MVI (MULTIVITAMINS) [Concomitant]
  7. SIMVASTATIN [Concomitant]
  8. TUMS-500 (CALCIUM CARBONATE) [Concomitant]

REACTIONS (1)
  - FATIGUE [None]
